FAERS Safety Report 7860081-X (Version None)
Quarter: 2011Q4

REPORT INFORMATION
  Report Type: 
  Country: None (occurrence: None)
  Receive Date: 20111026
  Receipt Date: 20111024
  Transmission Date: 20120403
  Serious: Yes (Hospitalization)
  Sender: FDA-Public Use
  Company Number: USA/USA/11/0021690

PATIENT
  Age: 43 Year
  Sex: Male
  Weight: 58.9676 kg

DRUGS (1)
  1. AUGMENTIN '125' [Suspect]
     Indication: URINARY TRACT INFECTION
     Dosage: ORAL
     Route: 048

REACTIONS (6)
  - BLISTER [None]
  - SKIN EXFOLIATION [None]
  - BLOOD BLISTER [None]
  - OPEN WOUND [None]
  - ONYCHOMADESIS [None]
  - DRUG HYPERSENSITIVITY [None]
